FAERS Safety Report 25456640 (Version 3)
Quarter: 2025Q4

REPORT INFORMATION
  Report Type: Spontaneous
  Country: CA (occurrence: CA)
  Receive Date: 20250619
  Receipt Date: 20251223
  Transmission Date: 20260117
  Serious: Yes (Life-Threatening, Hospitalization, Other)
  Sender: BAUSCH AND LOMB
  Company Number: CA-BAUSCH-BL-2024-002435

PATIENT
  Age: 30 Year
  Sex: Male

DRUGS (137)
  1. DICLOFENAC SODIUM [Suspect]
     Active Substance: DICLOFENAC SODIUM
     Indication: Neuralgia
     Dosage: NOT SPECIFIED
     Route: 065
  2. DICLOFENAC SODIUM [Suspect]
     Active Substance: DICLOFENAC SODIUM
     Indication: Guillain-Barre syndrome
     Dosage: 3 ADMINISTRATIONS
     Route: 065
  3. DICLOFENAC SODIUM [Suspect]
     Active Substance: DICLOFENAC SODIUM
     Indication: Pain
     Dosage: DICLOFENAC
     Route: 065
  4. VENLAFAXINE HYDROCHLORIDE [Suspect]
     Active Substance: VENLAFAXINE HYDROCHLORIDE
     Indication: Guillain-Barre syndrome
     Route: 065
  5. VENLAFAXINE HYDROCHLORIDE [Suspect]
     Active Substance: VENLAFAXINE HYDROCHLORIDE
     Indication: Neuralgia
     Route: 065
  6. VENLAFAXINE HYDROCHLORIDE [Suspect]
     Active Substance: VENLAFAXINE HYDROCHLORIDE
     Route: 065
  7. VENLAFAXINE HYDROCHLORIDE [Suspect]
     Active Substance: VENLAFAXINE HYDROCHLORIDE
     Route: 065
  8. NABILONE [Suspect]
     Active Substance: NABILONE
     Indication: Guillain-Barre syndrome
     Route: 065
  9. NABILONE [Suspect]
     Active Substance: NABILONE
     Indication: Neuralgia
     Route: 065
  10. NABILONE [Suspect]
     Active Substance: NABILONE
     Route: 065
  11. NABILONE [Suspect]
     Active Substance: NABILONE
     Route: 065
  12. HYDROMORPHONE [Suspect]
     Active Substance: HYDROMORPHONE
     Indication: Guillain-Barre syndrome
     Route: 042
  13. HYDROMORPHONE [Suspect]
     Active Substance: HYDROMORPHONE
     Indication: Neuralgia
     Route: 048
  14. HYDROMORPHONE [Suspect]
     Active Substance: HYDROMORPHONE
     Dosage: HYDROMORPHONE HYDROCHLORIDE
     Route: 030
  15. HYDROMORPHONE [Suspect]
     Active Substance: HYDROMORPHONE
     Dosage: HYDROMORPHONE HYDROCHLORIDE
     Route: 030
  16. HYDROMORPHONE [Suspect]
     Active Substance: HYDROMORPHONE
     Route: 048
  17. HYDROMORPHONE [Suspect]
     Active Substance: HYDROMORPHONE
     Dosage: HYDROMORPHONE HYDROCHLORIDE
     Route: 065
  18. HYDROMORPHONE [Suspect]
     Active Substance: HYDROMORPHONE
     Dosage: DOSAGE FORM: NOT SPECIFIED
     Route: 042
  19. HYDROMORPHONE [Suspect]
     Active Substance: HYDROMORPHONE
     Route: 065
  20. HYDROMORPHONE [Suspect]
     Active Substance: HYDROMORPHONE
     Route: 065
  21. HYDROMORPHONE [Suspect]
     Active Substance: HYDROMORPHONE
     Dosage: DOSAGE FORM: NOT SPECIFIED
     Route: 048
  22. HYDROMORPHONE [Suspect]
     Active Substance: HYDROMORPHONE
     Route: 065
  23. HYDROMORPHONE [Suspect]
     Active Substance: HYDROMORPHONE
     Route: 065
  24. HYDROMORPHONE [Suspect]
     Active Substance: HYDROMORPHONE
     Dosage: DOSAGE FORM: NOT SPECIFIED
     Route: 048
  25. HYDROMORPHONE [Suspect]
     Active Substance: HYDROMORPHONE
     Dosage: HYDROMORPHONE HYDROCHLORIDE INJECTION USP
     Route: 030
  26. HYDROMORPHONE [Suspect]
     Active Substance: HYDROMORPHONE
     Dosage: HYDROMORPHONE HYDROCHLORIDE INJECTION USP
     Route: 065
  27. ACETAMINOPHEN [Suspect]
     Active Substance: ACETAMINOPHEN
     Indication: Guillain-Barre syndrome
     Route: 065
  28. ACETAMINOPHEN [Suspect]
     Active Substance: ACETAMINOPHEN
     Indication: Neuralgia
     Route: 065
  29. ACETAMINOPHEN [Suspect]
     Active Substance: ACETAMINOPHEN
     Indication: Pain
     Route: 062
  30. ACETAMINOPHEN [Suspect]
     Active Substance: ACETAMINOPHEN
     Route: 062
  31. ACETAMINOPHEN [Suspect]
     Active Substance: ACETAMINOPHEN
     Route: 062
  32. ACETAMINOPHEN [Suspect]
     Active Substance: ACETAMINOPHEN
     Route: 065
  33. ACETAMINOPHEN [Suspect]
     Active Substance: ACETAMINOPHEN
     Dosage: DOSAGE FORM: NOT SPECIFIED
     Route: 065
  34. ACETAMINOPHEN [Suspect]
     Active Substance: ACETAMINOPHEN
     Route: 065
  35. ACETAMINOPHEN [Suspect]
     Active Substance: ACETAMINOPHEN
     Dosage: EXTENDED RELEASE
     Route: 065
  36. ACETAMINOPHEN [Suspect]
     Active Substance: ACETAMINOPHEN
     Route: 062
  37. ACETAMINOPHEN [Suspect]
     Active Substance: ACETAMINOPHEN
     Dosage: DOSAGE FORM: NOT SPECIFIED
     Route: 065
  38. DILAUDID [Suspect]
     Active Substance: HYDROMORPHONE HYDROCHLORIDE
     Indication: Guillain-Barre syndrome
     Route: 065
  39. DILAUDID [Suspect]
     Active Substance: HYDROMORPHONE HYDROCHLORIDE
     Indication: Neuralgia
     Route: 065
  40. DILAUDID [Suspect]
     Active Substance: HYDROMORPHONE HYDROCHLORIDE
     Indication: Pain
     Route: 042
  41. DILAUDID [Suspect]
     Active Substance: HYDROMORPHONE HYDROCHLORIDE
     Dosage: DOSAGE FORM: NOT SPECIFIED
     Route: 065
  42. FENTANYL [Suspect]
     Active Substance: FENTANYL
     Indication: Guillain-Barre syndrome
     Route: 065
  43. FENTANYL [Suspect]
     Active Substance: FENTANYL
     Indication: Neuralgia
     Dosage: 3 DOSAGES ADMINISTRATED
     Route: 065
  44. FENTANYL [Suspect]
     Active Substance: FENTANYL
     Indication: Pain
     Route: 062
  45. FENTANYL [Suspect]
     Active Substance: FENTANYL
     Route: 062
  46. FENTANYL [Suspect]
     Active Substance: FENTANYL
     Route: 065
  47. FENTANYL [Suspect]
     Active Substance: FENTANYL
     Route: 065
  48. FENTANYL [Suspect]
     Active Substance: FENTANYL
     Dosage: DOSAGE FORM: NOT SPECIFIED
     Route: 065
  49. FENTANYL [Suspect]
     Active Substance: FENTANYL
     Dosage: DOSAGE FORM: NOT SPECIFIED
     Route: 062
  50. FENTANYL [Suspect]
     Active Substance: FENTANYL
     Dosage: DOSAGE FORM: PATCH
     Route: 062
  51. FENTANYL [Suspect]
     Active Substance: FENTANYL
     Dosage: DOSAGE FORM: NOT SPECIFIED
     Route: 062
  52. FENTANYL [Suspect]
     Active Substance: FENTANYL
     Route: 065
  53. FENTANYL [Suspect]
     Active Substance: FENTANYL
     Dosage: PATCH
     Route: 062
  54. GABAPENTIN [Suspect]
     Active Substance: GABAPENTIN
     Indication: Guillain-Barre syndrome
     Dosage: NOT SPECIFIED
     Route: 065
  55. GABAPENTIN [Suspect]
     Active Substance: GABAPENTIN
     Indication: Neuralgia
     Route: 065
  56. GABAPENTIN [Suspect]
     Active Substance: GABAPENTIN
     Indication: Acute respiratory failure
     Route: 048
  57. GABAPENTIN [Suspect]
     Active Substance: GABAPENTIN
     Indication: Product used for unknown indication
     Route: 048
  58. GABAPENTIN [Suspect]
     Active Substance: GABAPENTIN
     Route: 048
  59. GABAPENTIN [Suspect]
     Active Substance: GABAPENTIN
     Route: 048
  60. GABAPENTIN [Suspect]
     Active Substance: GABAPENTIN
     Route: 048
  61. GABAPENTIN [Suspect]
     Active Substance: GABAPENTIN
     Route: 048
  62. GABAPENTIN [Suspect]
     Active Substance: GABAPENTIN
     Route: 048
  63. GABAPENTIN [Suspect]
     Active Substance: GABAPENTIN
     Route: 048
  64. GABAPENTIN [Suspect]
     Active Substance: GABAPENTIN
     Route: 048
  65. GABAPENTIN [Suspect]
     Active Substance: GABAPENTIN
     Route: 065
  66. GABAPENTIN [Suspect]
     Active Substance: GABAPENTIN
     Dosage: DOSAGE FORM: NOT SPECIFIED
     Route: 048
  67. GABAPENTIN [Suspect]
     Active Substance: GABAPENTIN
     Route: 065
  68. GABAPENTIN [Suspect]
     Active Substance: GABAPENTIN
     Route: 065
  69. GABAPENTIN [Suspect]
     Active Substance: GABAPENTIN
     Route: 065
  70. GABAPENTIN [Suspect]
     Active Substance: GABAPENTIN
     Route: 048
  71. GABAPENTIN [Suspect]
     Active Substance: GABAPENTIN
     Route: 065
  72. GABAPENTIN [Suspect]
     Active Substance: GABAPENTIN
     Route: 065
  73. GABAPENTIN [Suspect]
     Active Substance: GABAPENTIN
     Dosage: 4 ADMINISTRATIONS
     Route: 065
  74. GABAPENTIN [Suspect]
     Active Substance: GABAPENTIN
     Dosage: DOSAGE FORM: NOT SPECIFIED
     Route: 065
  75. GABAPENTIN [Suspect]
     Active Substance: GABAPENTIN
     Dosage: DOSAGE FORM: NOT SPECIFIED
     Route: 065
  76. GABAPENTIN [Suspect]
     Active Substance: GABAPENTIN
     Route: 065
  77. GABAPENTIN [Suspect]
     Active Substance: GABAPENTIN
     Route: 065
  78. GABAPENTIN [Suspect]
     Active Substance: GABAPENTIN
     Route: 065
  79. IBUPROFEN [Suspect]
     Active Substance: IBUPROFEN
     Indication: Guillain-Barre syndrome
     Route: 065
  80. IBUPROFEN [Suspect]
     Active Substance: IBUPROFEN
     Indication: Neuralgia
     Route: 042
  81. IBUPROFEN [Suspect]
     Active Substance: IBUPROFEN
     Indication: Acute respiratory failure
     Dosage: 2 ADMINISTRATIONS
     Route: 065
  82. IBUPROFEN [Suspect]
     Active Substance: IBUPROFEN
     Dosage: DOSAGE FORM: NOT SPECIFIED
     Route: 065
  83. IBUPROFEN [Suspect]
     Active Substance: IBUPROFEN
     Dosage: DOSAGE FORM: NOT SPECIFIED
     Route: 042
  84. KETAMINE [Suspect]
     Active Substance: KETAMINE
     Indication: Guillain-Barre syndrome
     Route: 065
  85. KETAMINE [Suspect]
     Active Substance: KETAMINE
     Indication: Neuralgia
     Dosage: KETAMINE HYDROCHLORIDE
     Route: 048
  86. KETAMINE [Suspect]
     Active Substance: KETAMINE
     Dosage: KETAMINE HYDROCHLORIDE
     Route: 042
  87. KETAMINE [Suspect]
     Active Substance: KETAMINE
     Dosage: KETAMINE HYDROCHLORIDE
     Route: 042
  88. KETAMINE [Suspect]
     Active Substance: KETAMINE
     Dosage: DOSAGE FORM: NOT SPECIFIED
     Route: 042
  89. KETAMINE [Suspect]
     Active Substance: KETAMINE
     Dosage: KETAMINE HYDROCHLORIDE
     Route: 048
  90. KETAMINE [Suspect]
     Active Substance: KETAMINE
     Route: 065
  91. LIDOCAINE [Suspect]
     Active Substance: LIDOCAINE
     Indication: Guillain-Barre syndrome
     Route: 061
  92. LIDOCAINE [Suspect]
     Active Substance: LIDOCAINE
     Indication: Neuralgia
     Dosage: OINTMENT TOPICAL
     Route: 061
  93. LIDOCAINE [Suspect]
     Active Substance: LIDOCAINE
     Route: 061
  94. OLANZAPINE [Suspect]
     Active Substance: OLANZAPINE
     Indication: Guillain-Barre syndrome
     Route: 065
  95. OLANZAPINE [Suspect]
     Active Substance: OLANZAPINE
     Indication: Neuralgia
     Route: 065
  96. OLANZAPINE [Suspect]
     Active Substance: OLANZAPINE
     Route: 065
  97. OLANZAPINE [Suspect]
     Active Substance: OLANZAPINE
     Route: 065
  98. OLANZAPINE [Suspect]
     Active Substance: OLANZAPINE
     Dosage: DOSAGE FORM: NOT SPECIFED
     Route: 065
  99. OLANZAPINE [Suspect]
     Active Substance: OLANZAPINE
     Route: 065
  100. OLANZAPINE [Suspect]
     Active Substance: OLANZAPINE
     Dosage: DOSAGE FORM: NOT SPECIFIED
     Route: 065
  101. ZOPICLONE [Suspect]
     Active Substance: ZOPICLONE
     Indication: Guillain-Barre syndrome
     Route: 065
  102. ZOPICLONE [Suspect]
     Active Substance: ZOPICLONE
     Indication: Neuralgia
     Route: 065
  103. ZOPICLONE [Suspect]
     Active Substance: ZOPICLONE
     Route: 065
  104. PHENYTOIN [Suspect]
     Active Substance: PHENYTOIN
     Indication: Neuralgia
     Route: 065
  105. PHENYTOIN [Suspect]
     Active Substance: PHENYTOIN
     Route: 065
  106. PHENYTOIN [Suspect]
     Active Substance: PHENYTOIN
     Route: 065
  107. PHENYTOIN [Suspect]
     Active Substance: PHENYTOIN
     Dosage: DOSAGE FORM: NOT SPECIFIED
     Route: 065
  108. HUMAN IMMUNOGLOBULIN G [Suspect]
     Active Substance: HUMAN IMMUNOGLOBULIN G
     Indication: Guillain-Barre syndrome
     Route: 065
  109. HUMAN IMMUNOGLOBULIN G [Suspect]
     Active Substance: HUMAN IMMUNOGLOBULIN G
     Route: 042
  110. HUMAN IMMUNOGLOBULIN G [Suspect]
     Active Substance: HUMAN IMMUNOGLOBULIN G
     Route: 065
  111. HUMAN IMMUNOGLOBULIN G [Suspect]
     Active Substance: HUMAN IMMUNOGLOBULIN G
     Route: 042
  112. NABILONE [Suspect]
     Active Substance: NABILONE
     Indication: Pain
     Route: 042
  113. NABILONE [Suspect]
     Active Substance: NABILONE
     Indication: Neuralgia
     Route: 042
  114. NABILONE [Suspect]
     Active Substance: NABILONE
     Indication: Guillain-Barre syndrome
     Route: 065
  115. NABILONE [Suspect]
     Active Substance: NABILONE
     Dosage: DOSAGE FORM: NOT SPECIFIED
     Route: 065
  116. NABILONE [Suspect]
     Active Substance: NABILONE
     Route: 065
  117. NABILONE [Suspect]
     Active Substance: NABILONE
     Dosage: DOSAGE FORM: NOT SPECIFIED
     Route: 042
  118. NABILONE [Suspect]
     Active Substance: NABILONE
     Route: 065
  119. NABILONE [Suspect]
     Active Substance: NABILONE
     Dosage: DOSAGE FORM: NOT SPECIFIED
     Route: 042
  120. NABILONE [Suspect]
     Active Substance: NABILONE
     Route: 065
  121. OLANZAPINE [Suspect]
     Active Substance: OLANZAPINE
     Indication: Neuralgia
     Route: 065
  122. OLANZAPINE [Suspect]
     Active Substance: OLANZAPINE
     Indication: Guillain-Barre syndrome
     Route: 065
  123. VENLAFAXINE HYDROCHLORIDE [Suspect]
     Active Substance: VENLAFAXINE HYDROCHLORIDE
     Indication: Neuralgia
     Route: 065
  124. VENLAFAXINE HYDROCHLORIDE [Suspect]
     Active Substance: VENLAFAXINE HYDROCHLORIDE
  125. VENLAFAXINE HYDROCHLORIDE [Suspect]
     Active Substance: VENLAFAXINE HYDROCHLORIDE
     Indication: Neuralgia
     Route: 065
  126. VENLAFAXINE HYDROCHLORIDE [Suspect]
     Active Substance: VENLAFAXINE HYDROCHLORIDE
     Indication: Guillain-Barre syndrome
  127. VOLTAREN [Suspect]
     Active Substance: DICLOFENAC SODIUM
     Indication: Neuralgia
     Dosage: DOSAGE FORM: NOT SPECIFIED
     Route: 065
  128. XYLOCAINE [Suspect]
     Active Substance: LIDOCAINE HYDROCHLORIDE
     Indication: Pain
     Dosage: 5 ADMINISTRATIONS
     Route: 065
  129. XYLOCAINE [Suspect]
     Active Substance: LIDOCAINE HYDROCHLORIDE
     Indication: Neuralgia
     Route: 042
  130. XYLOCAINE [Suspect]
     Active Substance: LIDOCAINE HYDROCHLORIDE
     Indication: Guillain-Barre syndrome
  131. IBUPROFEN [Suspect]
     Active Substance: IBUPROFEN
     Indication: Neuralgia
     Dosage: SUSPENSION ORAL
     Route: 042
  132. BUPIVACAINE [Concomitant]
     Active Substance: BUPIVACAINE
     Indication: Neuralgia
     Dosage: SOLUTION BLOCK/INFILTRATION
     Route: 065
  133. MORPHINE [Concomitant]
     Active Substance: MORPHINE
     Indication: Neuralgia
     Route: 065
  134. MORPHINE [Concomitant]
     Active Substance: MORPHINE
     Dosage: MORPHINE SULFATE
     Route: 065
  135. MORPHINE [Concomitant]
     Active Substance: MORPHINE
     Route: 065
  136. NORTRIPTYLINE [Concomitant]
     Active Substance: NORTRIPTYLINE
     Indication: Neuralgia
  137. NORTRIPTYLINE [Concomitant]
     Active Substance: NORTRIPTYLINE
     Route: 065

REACTIONS (5)
  - Inspiratory capacity decreased [Unknown]
  - Drug ineffective [Unknown]
  - Drug ineffective for unapproved indication [Unknown]
  - Incorrect dose administered [Unknown]
  - Off label use [Unknown]
